FAERS Safety Report 20923127 (Version 2)
Quarter: 2022Q2

REPORT INFORMATION
  Report Type: Spontaneous
  Country: US (occurrence: US)
  Receive Date: 20220607
  Receipt Date: 20220617
  Transmission Date: 20220721
  Serious: Yes (Hospitalization, Other)
  Sender: FDA-Public Use
  Company Number: US-UNITED THERAPEUTICS-UNT-2022-011900

PATIENT
  Age: 45 Year
  Sex: Female

DRUGS (3)
  1. REMODULIN [Suspect]
     Active Substance: TREPROSTINIL
     Indication: Pulmonary arterial hypertension
     Dosage: UNK, CONTINUING
     Route: 058
     Dates: start: 20220425
  2. REMODULIN [Suspect]
     Active Substance: TREPROSTINIL
     Dosage: 0.0198 ?G/KG, CONTINUING (PUMP RATE 0.036ML/HR)
     Route: 058
  3. REMODULIN [Suspect]
     Active Substance: TREPROSTINIL
     Dosage: 0.0242 ?G/KG, CONTINUING
     Route: 058

REACTIONS (2)
  - Hypoxia [Unknown]
  - Disease progression [Unknown]

NARRATIVE: CASE EVENT DATE: 20220528
